FAERS Safety Report 9912504 (Version 1)
Quarter: 2014Q1

REPORT INFORMATION
  Report Type: Spontaneous
  Country: US (occurrence: US)
  Receive Date: 20140220
  Receipt Date: 20140220
  Transmission Date: 20141002
  Serious: Yes (Hospitalization, Other)
  Sender: FDA-Public Use
  Company Number: US-AMGEN-USASP2014011725

PATIENT
  Age: 59 Year
  Sex: Female

DRUGS (19)
  1. PEGFILGRASTIM [Suspect]
     Indication: CERVIX CARCINOMA
     Dosage: 6 MG, UNK
     Route: 058
  2. AVASTIN /01555201/ [Suspect]
     Indication: CERVIX CARCINOMA
     Dosage: 500 MG, UNK
     Route: 040
     Dates: start: 20110309, end: 20111122
  3. ALOXI [Concomitant]
     Dosage: 0.25 MG, UNK
     Route: 042
  4. BENADRYL                           /00000402/ [Concomitant]
     Dosage: 25 MG, UNK
     Route: 042
  5. FAMOTIDINE [Concomitant]
     Dosage: 20 MG, UNK
     Route: 042
  6. TAXOL [Concomitant]
     Dosage: 175 MG/M2, UNK
     Route: 042
     Dates: start: 20110309, end: 20110714
  7. CARBOPLATIN [Concomitant]
     Dosage: 570 MG, UNK
     Route: 040
     Dates: start: 20110309, end: 20110714
  8. NEURONTIN [Concomitant]
     Dosage: 300 MG, 3 IN 1 D FOR 3 DAYS
     Route: 048
  9. VICODIN [Concomitant]
     Indication: PAIN
     Dosage: 5MG-500MG TAKE 1 PO Q4H
     Route: 048
  10. PROCHLORPERAZINE MALEATE [Concomitant]
     Indication: PAIN
     Dosage: 10 MG, TAKE 1 PO Q6H
     Route: 048
  11. VOLTAREN                           /00372302/ [Concomitant]
     Dosage: TAKE 1 APPLICATION TOPICAL QID (4 IN 1 D)
     Route: 061
  12. DEXAMETHASONE [Concomitant]
     Dosage: 20 MG, 12 HRS AND 6 HRS BEFORE PACLITAXEL CHEMO
     Route: 048
  13. PACLITAXEL [Concomitant]
     Dosage: 306 MG, UNK
     Route: 040
  14. EMEND                              /01627301/ [Concomitant]
     Dosage: 125-80 MG DAILY
     Route: 048
  15. SENOKOT                            /00142201/ [Concomitant]
     Dosage: UNK
     Route: 048
  16. VITAMIN C                          /00008001/ [Concomitant]
     Dosage: UNK
     Route: 048
  17. CEPHALEXIN                         /00145501/ [Concomitant]
     Dosage: UNK
     Route: 048
  18. HYDROCORTISONE SODIUM [Concomitant]
     Indication: HYPERSENSITIVITY
     Dosage: 100 MG, UNK
  19. METHYLPREDNISOLONE SODIUM SUCCINATE [Concomitant]
     Indication: HYPERSENSITIVITY
     Dosage: 125 MG, UNK

REACTIONS (19)
  - Perineal ulceration [Unknown]
  - Pain [Unknown]
  - Pyrexia [Unknown]
  - Infection [Unknown]
  - Thrombosis [Unknown]
  - Dehydration [Unknown]
  - Thrombophlebitis [Unknown]
  - Pelvic pain [Unknown]
  - Thrombosis [Unknown]
  - Cyst [Unknown]
  - Malaise [Unknown]
  - Neuropathy peripheral [Unknown]
  - Congenital neuropathy [Unknown]
  - Pain in extremity [Unknown]
  - Phlebitis [Recovering/Resolving]
  - Mucosal atrophy [Unknown]
  - Thrombocytopenia [Unknown]
  - Neutropenia [Unknown]
  - Febrile neutropenia [Unknown]
